FAERS Safety Report 4276425-4 (Version None)
Quarter: 2004Q1

REPORT INFORMATION
  Report Type: 
  Country: None (occurrence: None)
  Receive Date: 20040121
  Receipt Date: 20040121
  Transmission Date: 20041129
  Serious: Yes (Life-Threatening)
  Sender: FDA-Public Use
  Company Number: None

PATIENT
  Sex: Female

DRUGS (3)
  1. PANTOPRAZOLE 40 MG [Suspect]
     Indication: GASTROOESOPHAGEAL REFLUX DISEASE
     Dosage: 40 MG DAILY INTRAVENOUS
     Route: 042
     Dates: start: 20031121, end: 20031122
  2. TRAMADOL HCL [Suspect]
     Indication: GASTROOESOPHAGEAL REFLUX DISEASE
     Dosage: DAILY ORAL
     Route: 048
     Dates: start: 20031121, end: 20031124
  3. TRAMADOL HCL [Suspect]
     Indication: PAIN
     Dosage: DAILY ORAL
     Route: 048
     Dates: start: 20031121, end: 20031124

REACTIONS (4)
  - PULMONARY OEDEMA [None]
  - RESPIRATORY DEPRESSION [None]
  - STEVENS-JOHNSON SYNDROME [None]
  - THROMBOCYTOPENIA [None]
